FAERS Safety Report 18579026 (Version 1)
Quarter: 2020Q4

REPORT INFORMATION
  Report Type: Spontaneous
  Country: US (occurrence: US)
  Receive Date: 20201202
  Receipt Date: 20201202
  Transmission Date: 20210114
  Serious: No
  Sender: FDA-Public Use
  Company Number: None

PATIENT
  Age: 28 Year
  Sex: Female

DRUGS (1)
  1. LEVOFLOXACIN 500MG [Suspect]
     Active Substance: LEVOFLOXACIN
     Indication: SKIN INFECTION
     Dosage: ?          QUANTITY:1 TABLET(S);?
     Route: 048

REACTIONS (6)
  - Neuropathy peripheral [None]
  - Adjustment disorder with depressed mood [None]
  - Insomnia [None]
  - Tendonitis [None]
  - Muscular weakness [None]
  - Therapy cessation [None]

NARRATIVE: CASE EVENT DATE: 20201121
